FAERS Safety Report 5744819-3 (Version None)
Quarter: 2008Q2

REPORT INFORMATION
  Report Type: 
  Country: None (occurrence: None)
  Receive Date: 20080516
  Receipt Date: 20080506
  Transmission Date: 20081010
  Serious: Yes (Other)
  Sender: FDA-Public Use
  Company Number: 231003J08USA

PATIENT
  Age: 38 Year
  Sex: Female

DRUGS (5)
  1. REBIF [Suspect]
     Indication: MULTIPLE SCLEROSIS
     Dosage: 44 MCG, 3 IN 1 WEKS, SUBCUTANEOUS
     Route: 058
     Dates: start: 20060726
  2. PREDNISONE TAB [Concomitant]
  3. PAXIL [Concomitant]
  4. DARVOCET [Concomitant]
  5. SYNTHROID [Concomitant]

REACTIONS (3)
  - BIPOLAR DISORDER [None]
  - INCORRECT DOSE ADMINISTERED [None]
  - SUICIDE ATTEMPT [None]
